FAERS Safety Report 9465092 (Version 2)
Quarter: 2013Q3

REPORT INFORMATION
  Report Type: Spontaneous
  Country: US (occurrence: US)
  Receive Date: 20130819
  Receipt Date: 20130904
  Transmission Date: 20140515
  Serious: Yes (Hospitalization)
  Sender: FDA-Public Use
  Company Number: US-TARO-2013P1017955

PATIENT
  Age: 80 Year
  Sex: Male
  Weight: 86.64 kg

DRUGS (3)
  1. FLUOROURACIL [Suspect]
     Route: 061
     Dates: start: 201307, end: 20130802
  2. LISINOPRIL [Concomitant]
  3. SPIRONOLACTONE [Concomitant]

REACTIONS (5)
  - Application site erythema [Recovered/Resolved]
  - Myocardial infarction [Recovered/Resolved]
  - Application site paraesthesia [Recovered/Resolved]
  - Application site pruritus [Recovered/Resolved]
  - Application site pain [Recovered/Resolved]
